FAERS Safety Report 7445312-2 (Version None)
Quarter: 2011Q2

REPORT INFORMATION
  Report Type: 
  Country: None (occurrence: None)
  Receive Date: 20110429
  Receipt Date: 20100729
  Transmission Date: 20111010
  Serious: No
  Sender: FDA-Public Use
  Company Number: A0874508A

PATIENT
  Age: 57 Year
  Sex: Male

DRUGS (1)
  1. LEUKERAN [Suspect]
     Dates: start: 20100401, end: 20100729

REACTIONS (2)
  - DISCOMFORT [None]
  - ADVERSE EVENT [None]
